FAERS Safety Report 9907329 (Version 1)
Quarter: 2014Q1

REPORT INFORMATION
  Report Type: Spontaneous
  Country: US (occurrence: US)
  Receive Date: 20140218
  Receipt Date: 20140218
  Transmission Date: 20141002
  Serious: No
  Sender: FDA-Public Use
  Company Number: US-BIOGENIDEC-2014BI015631

PATIENT
  Sex: Female

DRUGS (5)
  1. TYSABRI [Suspect]
     Indication: MULTIPLE SCLEROSIS
     Route: 042
     Dates: start: 20071001, end: 20090910
  2. TYSABRI [Suspect]
     Indication: MULTIPLE SCLEROSIS
     Route: 042
     Dates: start: 20100702, end: 20121218
  3. AVONEX [Concomitant]
     Indication: MULTIPLE SCLEROSIS
     Route: 030
  4. TECFIDERA [Concomitant]
     Indication: MULTIPLE SCLEROSIS
  5. TECFIDERA [Concomitant]
     Indication: MULTIPLE SCLEROSIS
     Dates: end: 20140109

REACTIONS (6)
  - Gait disturbance [Unknown]
  - Balance disorder [Unknown]
  - Posture abnormal [Unknown]
  - Mental impairment [Unknown]
  - Chills [Unknown]
  - Dizziness [Unknown]
